FAERS Safety Report 25877472 (Version 1)
Quarter: 2025Q4

REPORT INFORMATION
  Report Type: Other
  Country: EU (occurrence: EU)
  Receive Date: 20251003
  Receipt Date: 20251003
  Transmission Date: 20260118
  Serious: Yes (Hospitalization)
  Sender: ZYDUS PHARM
  Company Number: None

PATIENT

DRUGS (1)
  1. ATORVASTATIN [Suspect]
     Active Substance: ATORVASTATIN
     Indication: Cardiovascular event prophylaxis
     Dosage: 40 MILLIGRAM, QD
     Route: 048
     Dates: start: 202407, end: 20250829

REACTIONS (2)
  - Autoimmune myositis [Not Recovered/Not Resolved]
  - HMG CoA reductase antibody test [Not Recovered/Not Resolved]

NARRATIVE: CASE EVENT DATE: 20250601
